FAERS Safety Report 7842671-3 (Version None)
Quarter: 2011Q4

REPORT INFORMATION
  Report Type: 
  Country: None (occurrence: None)
  Receive Date: 20111025
  Receipt Date: 20111012
  Transmission Date: 20120403
  Serious: Yes (Other)
  Sender: FDA-Public Use
  Company Number: US-BAYER-2011-027477

PATIENT
  Age: 30 Year
  Sex: Female
  Weight: 99.773 kg

DRUGS (4)
  1. ZOFRAN [Concomitant]
     Dosage: 4 MG, UNK
  2. METFORMIN HCL [Concomitant]
     Dosage: 500 MG, UNK
  3. VICODIN [Concomitant]
  4. YAZ [Suspect]
     Indication: MENSTRUATION IRREGULAR
     Dosage: UNK
     Dates: start: 20090301

REACTIONS (8)
  - ABDOMINAL PAIN [None]
  - NAUSEA [None]
  - CHOLECYSTITIS CHRONIC [None]
  - PAIN [None]
  - INJURY [None]
  - ANXIETY [None]
  - DRUG HYPERSENSITIVITY [None]
  - ANHEDONIA [None]
